FAERS Safety Report 11796568 (Version 1)
Quarter: 2015Q4

REPORT INFORMATION
  Report Type: Spontaneous
  Country: CH (occurrence: CH)
  Receive Date: 20151203
  Receipt Date: 20151203
  Transmission Date: 20160305
  Serious: Yes (Death)
  Sender: FDA-Public Use
  Company Number: CH-INDIVIOR LIMITED-INDV-085809-2015

PATIENT
  Age: 91 Year
  Sex: Female
  Weight: 64 kg

DRUGS (20)
  1. MELATONIN [Concomitant]
     Active Substance: MELATONIN
     Indication: INSOMNIA
     Dosage: 3 MG, ONE PER DAY
     Route: 048
     Dates: start: 20140825, end: 20141019
  2. TEMGESIC [Suspect]
     Active Substance: BUPRENORPHINE HYDROCHLORIDE
     Indication: PAIN MANAGEMENT
     Dosage: 0.1 MG, 3 TIMES PER DAY
     Route: 060
     Dates: start: 20140818, end: 20140908
  3. TEMGESIC [Suspect]
     Active Substance: BUPRENORPHINE HYDROCHLORIDE
     Dosage: 0.1 MG, 3 TIMES  DAILY
     Route: 060
     Dates: start: 20141014
  4. RISPERDAL [Concomitant]
     Active Substance: RISPERIDONE
     Indication: AGITATION
     Dosage: 2 MG ONE PER DAY
     Route: 048
     Dates: start: 20140807, end: 20140816
  5. RISPERDAL [Concomitant]
     Active Substance: RISPERIDONE
     Dosage: 1 MG DAILY
     Route: 048
     Dates: start: 20140817, end: 20140819
  6. ARICEPT [Suspect]
     Active Substance: DONEPEZIL HYDROCHLORIDE
     Indication: DEMENTIA
     Dosage: 5 MG, ONE PER DAY
     Route: 048
     Dates: start: 20140820, end: 20141012
  7. CITALOPRAM [Suspect]
     Active Substance: CITALOPRAM HYDROBROMIDE
     Dosage: 20 MG, ONE PER DAY
     Route: 048
     Dates: start: 20141021, end: 20141021
  8. AMOXICILLINE                       /00249602/ [Concomitant]
     Active Substance: AMOXICILLIN
     Indication: URINARY TRACT INFECTION
     Dosage: 1000 MG
     Route: 048
     Dates: start: 20141020, end: 20141021
  9. MORPHINE [Concomitant]
     Active Substance: MORPHINE
     Indication: PAIN MANAGEMENT
     Dosage: 1 MG, 3 - 6 TIMES DAILY
     Route: 048
     Dates: start: 20141009, end: 20141014
  10. CEFTRIAXON [Concomitant]
     Active Substance: CEFTRIAXONE
     Indication: URINARY TRACT INFECTION
     Dosage: 1000 MG
     Route: 040
     Dates: start: 20141021
  11. RISPERDAL [Concomitant]
     Active Substance: RISPERIDONE
     Dosage: 0.5 MG DAILY
     Route: 048
     Dates: start: 20140820, end: 20140825
  12. ARICEPT [Suspect]
     Active Substance: DONEPEZIL HYDROCHLORIDE
     Dosage: 10 MG, ONE PER DAY
     Route: 048
     Dates: start: 20141013, end: 20141019
  13. HALDOL [Suspect]
     Active Substance: HALOPERIDOL
     Indication: AGITATION
     Dosage: 2 X 0.5 MG RECEIVED AT 03:00 PM AND 07:00 PM
     Route: 030
     Dates: start: 20141021
  14. CITALOPRAM [Suspect]
     Active Substance: CITALOPRAM HYDROBROMIDE
     Indication: DEPRESSION
     Dosage: 10 MG, ONE PER DAY
     Route: 048
     Dates: start: 20140901, end: 20140905
  15. CITALOPRAM [Suspect]
     Active Substance: CITALOPRAM HYDROBROMIDE
     Dosage: 20 MG, ONE PER DAY
     Route: 048
     Dates: start: 20140906, end: 20141009
  16. AMLODIPINE [Concomitant]
     Active Substance: AMLODIPINE BESYLATE
     Indication: HYPERTENSION
     Dosage: 5 MG, ONE PER DAY
     Route: 048
     Dates: start: 20140909
  17. DAFALGAN [Concomitant]
     Active Substance: ACETAMINOPHEN
     Indication: PAIN MANAGEMENT
     Dosage: 1 G, ONE TO THREE TIMES A DAY
     Route: 048
     Dates: start: 20140811
  18. MONURIL [Concomitant]
     Active Substance: FOSFOMYCIN SODIUM
     Indication: URINARY TRACT INFECTION
     Dosage: SINGLE 3 GRAM DOSE
     Route: 048
     Dates: start: 20141017, end: 20141017
  19. CITALOPRAM [Suspect]
     Active Substance: CITALOPRAM HYDROBROMIDE
     Dosage: 10 MG, ONE PER DAY
     Route: 048
     Dates: start: 20141010, end: 20141020
  20. DISTRANEURIN                       /00027501/ [Suspect]
     Active Substance: CLOMETHIAZOLE
     Indication: AGITATION
     Dosage: 300 MG, ONE PER DAY
     Route: 048
     Dates: start: 20140823

REACTIONS (11)
  - Drug level increased [None]
  - Depression [None]
  - Urinary tract infection [None]
  - Insomnia [None]
  - Fall [None]
  - Somnolence [None]
  - Abnormal behaviour [None]
  - Dehydration [None]
  - Death [Fatal]
  - Condition aggravated [None]
  - Confusional state [None]

NARRATIVE: CASE EVENT DATE: 20141021
